FAERS Safety Report 11088484 (Version 1)
Quarter: 2015Q2

REPORT INFORMATION
  Report Type: Spontaneous
  Country: AT (occurrence: AT)
  Receive Date: 20150504
  Receipt Date: 20150504
  Transmission Date: 20150821
  Serious: Yes (Life-Threatening, Other)
  Sender: FDA-Public Use
  Company Number: AT-MYLANLABS-2015M1014941

PATIENT

DRUGS (3)
  1. IBUPROFEN. [Suspect]
     Active Substance: IBUPROFEN
     Indication: ANALGESIC THERAPY
     Route: 065
  2. TICAGRELOR [Concomitant]
     Active Substance: TICAGRELOR
     Indication: ANTIPLATELET THERAPY
     Route: 065
  3. ASPIRIN                            /00002701/ [Interacting]
     Active Substance: ASPIRIN
     Indication: ANTIPLATELET THERAPY
     Route: 065

REACTIONS (4)
  - Cardiogenic shock [Recovered/Resolved]
  - Drug interaction [Recovered/Resolved]
  - Acute myocardial infarction [Recovered/Resolved]
  - Thrombosis in device [Recovered/Resolved]
